FAERS Safety Report 20666956 (Version 1)
Quarter: 2022Q2

REPORT INFORMATION
  Report Type: Other
  Country: US (occurrence: None)
  Receive Date: 20220404
  Receipt Date: 20220404
  Transmission Date: 20220720
  Serious: Yes (Death)
  Sender: FDA-Public Use
  Company Number: US-ROCHE-3056422

PATIENT
  Sex: Male

DRUGS (1)
  1. OCREVUS [Suspect]
     Active Substance: OCRELIZUMAB
     Indication: Relapsing-remitting multiple sclerosis
     Dosage: (PRESCRIBED AS INFUSE 600 MG IV EVERY 6 MONTHS)?DATE OF TREATMENT: 20/NOV/2019, 04/DEC/2019, 20/MAY/
     Route: 065
     Dates: start: 2019

REACTIONS (1)
  - COVID-19 [Fatal]
